FAERS Safety Report 8618032 (Version 3)
Quarter: 2012Q4

REPORT INFORMATION
  Report Type: 
  Country: FR (occurrence: FR)
  Receive Date: 20120615
  Receipt Date: 20121005
  Transmission Date: 20130627
  Serious: Yes (Hospitalization)
  Sender: FDA-Public Use
  Company Number: FR-B.I. PHARMACEUTICALS,INC./RIDGEFIELD-2012-FF-00714FF

PATIENT
  Age: 58 Year
  Sex: Male

DRUGS (9)
  1. TWYNSTA [Suspect]
     Indication: HYPERTENSION
     Dosage: 80 mg/5 mg
     Route: 048
     Dates: end: 20120428
  2. ESOMEPRAZOLE [Suspect]
     Route: 048
     Dates: end: 20120428
  3. RAMIPRIL [Suspect]
     Dosage: 10 mg
     Route: 048
     Dates: end: 20120428
  4. METFORMINE [Suspect]
     Indication: INSULIN-REQUIRING TYPE 2 DIABETES MELLITUS
     Dosage: 3 g
     Route: 048
     Dates: end: 20120428
  5. CRESTOR [Suspect]
     Dosage: 20 mg
     Route: 048
     Dates: end: 20120428
  6. BISOPROLOL [Concomitant]
     Route: 048
  7. KARDEGIC [Concomitant]
     Route: 048
  8. LANTUS [Concomitant]
     Indication: INSULIN-REQUIRING TYPE 2 DIABETES MELLITUS
     Dosage: 70 U
     Route: 058
  9. HUMALOG [Concomitant]
     Indication: INSULIN-REQUIRING TYPE 2 DIABETES MELLITUS
     Dosage: 54 U
     Route: 058

REACTIONS (1)
  - Hepatitis acute [Recovered/Resolved]
